FAERS Safety Report 9036284 (Version 2)
Quarter: 2013Q1

REPORT INFORMATION
  Report Type: Spontaneous
  Country: DE (occurrence: None)
  Receive Date: 20130114
  Receipt Date: 20130123
  Transmission Date: 20140127
  Serious: Yes (Hospitalization)
  Sender: FDA-Public Use
  Company Number: DSM-2013-00015

PATIENT
  Age: 86 Year
  Sex: Female
  Weight: 89 kg

DRUGS (3)
  1. SEVIKAR HCT (TABLET) [Suspect]
     Indication: ESSENTIAL HYPERTENSION
     Route: 048
  2. SERUM LIQUIDS REDUCING AGENTS (SERUM LIPID REDUCING AGENTS) [Concomitant]
  3. ACETYLSALICYLIC ACID (ACETYLSALICYLIC ACID) (ACETYLSALICYLIC ACID) [Concomitant]

REACTIONS (1)
  - Cerebrovascular accident [None]
